FAERS Safety Report 15271730 (Version 2)
Quarter: 2018Q3

REPORT INFORMATION
  Report Type: Report from Study
  Country: US (occurrence: US)
  Receive Date: 20180813
  Receipt Date: 20180904
  Transmission Date: 20181010
  Serious: Yes (Hospitalization)
  Sender: FDA-Public Use
  Company Number: US-GILEAD-2018-0355511

PATIENT
  Age: 55 Year
  Sex: Male
  Weight: 85.26 kg

DRUGS (10)
  1. CELEXA [Concomitant]
     Active Substance: CITALOPRAM HYDROBROMIDE
  2. LACTULOSE. [Concomitant]
     Active Substance: LACTULOSE
  3. AMBRISENTAN [Suspect]
     Active Substance: AMBRISENTAN
     Indication: PORTOPULMONARY HYPERTENSION
     Dosage: 5 MG, QD
     Route: 048
     Dates: start: 20160728
  4. SILDENAFIL CITRATE. [Concomitant]
     Active Substance: SILDENAFIL CITRATE
  5. METOPROLOL                         /00376902/ [Concomitant]
     Active Substance: METOPROLOL TARTRATE
  6. ENTECAVIR. [Concomitant]
     Active Substance: ENTECAVIR
  7. GABAPENTIN. [Concomitant]
     Active Substance: GABAPENTIN
  8. FLUTICASONE. [Concomitant]
     Active Substance: FLUTICASONE
  9. WARFARIN [Concomitant]
     Active Substance: WARFARIN
  10. ALBUTEROL SULFATE. [Concomitant]
     Active Substance: ALBUTEROL SULFATE

REACTIONS (2)
  - Road traffic accident [Unknown]
  - Injury [Unknown]
